FAERS Safety Report 11103781 (Version 2)
Quarter: 2015Q3

REPORT INFORMATION
  Report Type: Spontaneous
  Country: US (occurrence: None)
  Receive Date: 20150508
  Receipt Date: 20150722
  Transmission Date: 20151125
  Serious: Yes (Hospitalization, Other)
  Sender: FDA-Public Use
  Company Number: US-2015CRT000472

PATIENT
  Age: 39 Year
  Sex: Female
  Weight: 157.4 kg

DRUGS (10)
  1. BABY ASPIRIN (ACETYLSALICYCLIC ACID) [Concomitant]
  2. BIOTIN (BIOTIN) [Concomitant]
  3. FISH OIL (FISH OIL) [Concomitant]
     Active Substance: FISH OIL
  4. VITAMIN D (ERGOCALCIFEROL) [Concomitant]
     Active Substance: ERGOCALCIFEROL
  5. MAGNESIUM (MAGNESIUM) [Concomitant]
     Active Substance: MAGNESIUM
  6. LISINOPRIL (LISINOPRIL) [Concomitant]
     Active Substance: LISINOPRIL
  7. KORLYM [Suspect]
     Active Substance: MIFEPRISTONE
     Indication: CUSHING^S SYNDROME
     Dosage: 1 DF, DAILY, ORAL
     Route: 048
     Dates: start: 201311, end: 201403
  8. MULTIVITAMIN (ASCORBIC ACID, CALCIUM PANTOTHENATE, ERGOCALCIFEROL, NICOTINAMIDE, PYRIDOXINE HYDROCHLORIDE, RETINOL, RIBOFLAVIN, THIAMINE HYDROCHLORIDE) [Concomitant]
  9. LEVOTHYROXINE (LEVOTHYROXINE) [Concomitant]
     Active Substance: LEVOTHYROXINE
  10. HYDROCHLOROTHIAZIDE (HYDROCHLOROTHIAZIDE) [Concomitant]
     Active Substance: HYDROCHLOROTHIAZIDE

REACTIONS (6)
  - Hysterectomy [None]
  - Vaginal discharge [None]
  - Uterine enlargement [None]
  - Endometrial hyperplasia [None]
  - Therapy change [None]
  - Ovarian adenoma [None]
